FAERS Safety Report 7488170-2 (Version None)
Quarter: 2011Q2

REPORT INFORMATION
  Report Type: 
  Country: None (occurrence: None)
  Receive Date: 20110518
  Receipt Date: 20110511
  Transmission Date: 20111010
  Serious: Yes (Death)
  Sender: FDA-Public Use
  Company Number: CZ-ROCHE-776642

PATIENT
  Sex: Female

DRUGS (3)
  1. BEVACIZUMAB [Suspect]
     Indication: BREAST CANCER
     Dosage: DAYS 1, EVERY 3 WEEKS, INFUSION AS PER PROTOCOL, MOST RECENT DOSE PRIOR TO SAE ON 20 AUGUST 2010
     Route: 042
     Dates: start: 20100820, end: 20101011
  2. CAPECITABINE [Suspect]
     Indication: BREAST CANCER
     Dosage: DAY 1 TO 14, EVERY 3 WEEKS, MOST RECENT DOSE PRIOR TO SAE ON 20 AUGUST 2010
     Route: 065
     Dates: start: 20100820, end: 20101009
  3. MORPHINE [Concomitant]
     Dates: start: 20100922, end: 20101011

REACTIONS (1)
  - DYSPNOEA [None]
